FAERS Safety Report 7603940-5 (Version None)
Quarter: 2011Q3

REPORT INFORMATION
  Report Type: 
  Country: None (occurrence: None)
  Receive Date: 20110712
  Receipt Date: 20110523
  Transmission Date: 20111222
  Serious: Yes (Other)
  Sender: FDA-Public Use
  Company Number: US-ASTRAZENECA-2011SE31779

PATIENT
  Age: 60 Year
  Sex: Female

DRUGS (5)
  1. PROVIGIL [Suspect]
     Indication: SCHIZOAFFECTIVE DISORDER
  2. EFFEXOR XR [Suspect]
     Indication: SCHIZOAFFECTIVE DISORDER
  3. SEROQUEL [Suspect]
     Indication: SCHIZOAFFECTIVE DISORDER
     Route: 048
  4. GEODON [Suspect]
     Indication: SCHIZOAFFECTIVE DISORDER
  5. ATIVAN [Suspect]
     Indication: SCHIZOAFFECTIVE DISORDER

REACTIONS (3)
  - PSYCHOTIC DISORDER [None]
  - DEPRESSION [None]
  - DRUG DOSE OMISSION [None]
